FAERS Safety Report 8917168 (Version 2)
Quarter: 2013Q1

REPORT INFORMATION
  Report Type: Spontaneous
  Country: BR (occurrence: BR)
  Receive Date: 20121120
  Receipt Date: 20130122
  Transmission Date: 20140127
  Serious: Yes (Death)
  Sender: FDA-Public Use
  Company Number: PHHY2012BR105538

PATIENT
  Age: 92 Year
  Sex: Female

DRUGS (4)
  1. EXELON PATCH [Suspect]
     Indication: SENILE DEMENTIA
     Dosage: 9.5MG/5CM2 MG, DAILY
     Route: 062
  2. SINERGEN [Concomitant]
     Indication: HYPERTENSION
     Dosage: 5/10MG 1 TABLET IN THE MORNING
     Route: 048
  3. LABIRIN [Concomitant]
     Indication: INNER EAR DISORDER
     Dosage: 1 TABLET DAILY
     Route: 048
  4. LEXOTAN [Concomitant]
     Indication: SLEEP DISORDER
     Dosage: 1 DF, DAILY
     Route: 048

REACTIONS (1)
  - Cardiac arrest [Fatal]
